FAERS Safety Report 11556047 (Version 1)
Quarter: 2015Q3

REPORT INFORMATION
  Report Type: Spontaneous
  Country: US (occurrence: US)
  Receive Date: 20150916
  Receipt Date: 20150916
  Transmission Date: 20151125
  Serious: No
  Sender: FDA-Public Use
  Company Number: US-ELI_LILLY_AND_COMPANY-US200704003602

PATIENT
  Age: 67 Year
  Sex: Female

DRUGS (3)
  1. FORTEO [Suspect]
     Active Substance: TERIPARATIDE
     Dates: start: 2007
  2. MIACALCIN [Concomitant]
     Active Substance: CALCITONIN SALMON
  3. FORTEO [Suspect]
     Active Substance: TERIPARATIDE
     Indication: OSTEOPOROSIS
     Dosage: 20 UG, UNK
     Dates: start: 2006, end: 20070412

REACTIONS (10)
  - Musculoskeletal stiffness [Not Recovered/Not Resolved]
  - Arthralgia [Not Recovered/Not Resolved]
  - Myalgia [Unknown]
  - Vertigo [Recovering/Resolving]
  - Bone pain [Unknown]
  - Musculoskeletal pain [Unknown]
  - Pain [Unknown]
  - Dizziness [Recovering/Resolving]
  - Polymyalgia rheumatica [Unknown]
  - Mobility decreased [Unknown]

NARRATIVE: CASE EVENT DATE: 200702
